FAERS Safety Report 13488281 (Version 1)
Quarter: 2017Q2

REPORT INFORMATION
  Report Type: Spontaneous
  Country: US (occurrence: US)
  Receive Date: 20170426
  Receipt Date: 20170426
  Transmission Date: 20170830
  Serious: Yes (Hospitalization)
  Sender: FDA-Public Use
  Company Number: None

PATIENT
  Age: 74 Year
  Sex: Male
  Weight: 130 kg

DRUGS (2)
  1. LEUPROLIDE ACETATE. [Suspect]
     Active Substance: LEUPROLIDE ACETATE
     Dates: end: 20170221
  2. CASODEX [Suspect]
     Active Substance: BICALUTAMIDE
     Dates: end: 20170311

REACTIONS (5)
  - Sepsis [None]
  - Tachypnoea [None]
  - Pneumonia [None]
  - Tachycardia [None]
  - Hyperkalaemia [None]

NARRATIVE: CASE EVENT DATE: 20170312
